FAERS Safety Report 20375416 (Version 1)
Quarter: 2022Q1

REPORT INFORMATION
  Report Type: Other
  Country: CN (occurrence: None)
  Receive Date: 20220125
  Receipt Date: 20220125
  Transmission Date: 20220423
  Serious: Yes (Other)
  Sender: FDA-Public Use
  Company Number: CN-ROCHE-3003465

PATIENT
  Age: 78 Year
  Sex: Female

DRUGS (1)
  1. TECENTRIQ [Suspect]
     Active Substance: ATEZOLIZUMAB
     Indication: Hepatic cancer
     Dosage: 1200MG/20ML/VIAL, INJECTION
     Route: 041

REACTIONS (2)
  - Diabetes mellitus [Recovering/Resolving]
  - Hypertension [Recovering/Resolving]
